FAERS Safety Report 4289214-1 (Version None)
Quarter: 2004Q1

REPORT INFORMATION
  Report Type: 
  Country: None (occurrence: None)
  Receive Date: 20040205
  Receipt Date: 20040129
  Transmission Date: 20041129
  Serious: Yes (Hospitalization)
  Sender: FDA-Public Use
  Company Number: 200410039BFR

PATIENT
  Age: 66 Year
  Sex: Male

DRUGS (5)
  1. GLUCOR (ACARBOSE) [Suspect]
     Dosage: ORAL
     Route: 048
     Dates: end: 20030926
  2. ALLOPURINOL [Suspect]
     Dosage: 100 MG, ORAL
     Route: 048
     Dates: end: 20030926
  3. ZESTORETIC [Suspect]
     Dosage: ORAL
     Route: 048
     Dates: end: 20030926
  4. PRAVASTATIN SODIUM [Suspect]
     Dosage: 20 MG, ORAL
     Route: 048
     Dates: end: 20030926
  5. GLUCOPHAGE [Concomitant]

REACTIONS (3)
  - CYTOLYTIC HEPATITIS [None]
  - HEPATIC STEATOSIS [None]
  - HEPATITIS CHOLESTATIC [None]
